FAERS Safety Report 6496452-6 (Version None)
Quarter: 2009Q4

REPORT INFORMATION
  Report Type: 
  Country: None (occurrence: None)
  Receive Date: 20091214
  Receipt Date: 20091209
  Transmission Date: 20100525
  Serious: Yes (Hospitalization, Other)
  Sender: FDA-Public Use
  Company Number: US-RB-026616-09

PATIENT
  Age: 32 Year
  Sex: Female

DRUGS (4)
  1. SUBOXONE [Suspect]
     Route: 060
     Dates: start: 20091101
  2. SUBOXONE [Suspect]
     Route: 060
     Dates: start: 20090601, end: 20091101
  3. SUBOXONE [Suspect]
     Route: 060
     Dates: start: 20090618
  4. XANAX [Concomitant]
     Indication: ANXIETY
     Dosage: UNKNOWN DOSING DETAILS
     Route: 065

REACTIONS (2)
  - CONVULSION [None]
  - FALL [None]
